FAERS Safety Report 21932571 (Version 2)
Quarter: 2023Q1

REPORT INFORMATION
  Report Type: Spontaneous
  Country: US (occurrence: US)
  Receive Date: 20230131
  Receipt Date: 20230227
  Transmission Date: 20230417
  Serious: Yes (Hospitalization)
  Sender: FDA-Public Use
  Company Number: US-INTRA-CELLULAR THERAPIES, INC.-2023ICT00086

PATIENT
  Age: 34 Year
  Sex: Female
  Weight: 110.84 kg

DRUGS (8)
  1. CAPLYTA [Suspect]
     Active Substance: LUMATEPERONE
     Indication: Bipolar II disorder
     Dosage: 1 CAPSULE (42 MG), 1X/DAY EVERY DAY IN THE EVENING
     Route: 048
     Dates: start: 2022, end: 2023
  2. CAPLYTA [Suspect]
     Active Substance: LUMATEPERONE
     Indication: Bipolar disorder
  3. DICYCLOMINE HYDROCHLORIDE [Concomitant]
     Active Substance: DICYCLOMINE HYDROCHLORIDE
     Dosage: 1 TABLET (20 MG), 3X/DAY WITH MEALS FOR ABDOMINAL PAIN
     Route: 048
  4. OMEPRAZOLE [Concomitant]
     Active Substance: OMEPRAZOLE
     Dosage: 1 CAPSULE (40 MG), 1X/DAY
     Route: 048
  5. SEMAGLUTIDE [Concomitant]
     Active Substance: SEMAGLUTIDE
     Dosage: 0.5 MG, 1X/WEEK
     Route: 058
  6. SPIRONOLACTONE [Concomitant]
     Active Substance: SPIRONOLACTONE
     Dosage: 1 TABLET (100 MG), 1X/DAY
     Route: 048
  7. TRAZODONE [Concomitant]
     Active Substance: TRAZODONE HYDROCHLORIDE
     Dosage: 50 MG, 1X/DAY AT BEDTIME
     Route: 048
  8. MOUNJARO [Concomitant]
     Active Substance: TIRZEPATIDE

REACTIONS (14)
  - Hypoaesthesia [Recovering/Resolving]
  - Paraesthesia [Recovering/Resolving]
  - Dysphemia [Recovering/Resolving]
  - Pain in extremity [Recovering/Resolving]
  - Speech disorder [Recovering/Resolving]
  - Extrapyramidal disorder [Recovering/Resolving]
  - Abdominal discomfort [Unknown]
  - Cognitive disorder [Unknown]
  - Drug screen positive [Unknown]
  - Urine ketone body present [Unknown]
  - Protein urine present [Unknown]
  - Red blood cells urine positive [Unknown]
  - Smear cervix abnormal [Unknown]
  - Headache [Unknown]

NARRATIVE: CASE EVENT DATE: 20230101
